FAERS Safety Report 7275803-9 (Version None)
Quarter: 2011Q1

REPORT INFORMATION
  Report Type: 
  Country: None (occurrence: None)
  Receive Date: 20110204
  Receipt Date: 20110124
  Transmission Date: 20110831
  Serious: Yes (Life-Threatening, Hospitalization, Disabling)
  Sender: FDA-Public Use
  Company Number: US-WATSON-2011-00738

PATIENT
  Age: 49 Year
  Sex: Male

DRUGS (2)
  1. MONODOX [Suspect]
     Indication: COUGH
     Dosage: ^APPROXIMATELY 24 HOURS^
     Route: 048
  2. MONODOX [Suspect]
     Indication: OROPHARYNGEAL PAIN

REACTIONS (1)
  - STEVENS-JOHNSON SYNDROME [None]
